FAERS Safety Report 8062911-8 (Version None)
Quarter: 2012Q1

REPORT INFORMATION
  Report Type: 
  Country: None (occurrence: None)
  Receive Date: 20120123
  Receipt Date: 20120123
  Transmission Date: 20120608
  Serious: No
  Sender: FDA-Public Use
  Company Number: None

PATIENT
  Age: 50 Year
  Sex: Female
  Weight: 68.038 kg

DRUGS (1)
  1. LUPRON [Suspect]
     Indication: UTERINE LEIOMYOMA
     Dosage: ONCE A MONTH

REACTIONS (3)
  - BONE PAIN [None]
  - OSTEOARTHRITIS [None]
  - ARTHRALGIA [None]
